FAERS Safety Report 21842499 (Version 1)
Quarter: 2023Q1

REPORT INFORMATION
  Report Type: Spontaneous
  Country: US (occurrence: US)
  Receive Date: 20230110
  Receipt Date: 20230110
  Transmission Date: 20230417
  Serious: No
  Sender: FDA-Public Use
  Company Number: US-ABBVIE-4234512

PATIENT
  Age: 41 Year
  Weight: 68.038 kg

DRUGS (2)
  1. HUMIRA [Suspect]
     Active Substance: ADALIMUMAB
     Indication: Granulomatous rosacea
     Route: 058
     Dates: start: 202208
  2. IRON [Concomitant]
     Active Substance: IRON
     Indication: Anaemia
     Dosage: SUPPLEMENT

REACTIONS (3)
  - Anger [Not Recovered/Not Resolved]
  - Off label use [Not Recovered/Not Resolved]
  - Paranoia [Not Recovered/Not Resolved]

NARRATIVE: CASE EVENT DATE: 20220801
